FAERS Safety Report 8267708 (Version 3)
Quarter: 2013Q2

REPORT INFORMATION
  Report Type: Spontaneous
  Country: US (occurrence: None)
  Receive Date: 20111122
  Receipt Date: 20120426
  Transmission Date: 20140414
  Serious: Yes (Other)
  Sender: FDA-Public Use
  Company Number: PHEH2011US01972

PATIENT
  Age: 39 Year
  Sex: Female

DRUGS (1)
  1. GILENYA [Suspect]
     Indication: MULTIPLE SCLEROSIS
     Dosage: 0,5 MG, QD, ORAL
     Route: 048
     Dates: start: 201107, end: 20110818

REACTIONS (3)
  - HERPES ZOSTER [None]
  - RASH [None]
  - ERYTHEMA [None]
